FAERS Safety Report 12523457 (Version 1)
Quarter: 2016Q3

REPORT INFORMATION
  Report Type: Spontaneous
  Country: US (occurrence: US)
  Receive Date: 20160703
  Receipt Date: 20160703
  Transmission Date: 20161109
  Serious: Yes (Hospitalization, Other)
  Sender: FDA-Public Use
  Company Number: US-AMGEN-USASP2016084355

PATIENT
  Age: 57 Year
  Sex: Male

DRUGS (1)
  1. ENBREL [Suspect]
     Active Substance: ETANERCEPT
     Indication: RHEUMATOID ARTHRITIS
     Dosage: 50 MG, QWK
     Route: 058
     Dates: start: 200511

REACTIONS (8)
  - Diarrhoea [Unknown]
  - Vomiting [Unknown]
  - Tooth abscess [Unknown]
  - Nephrolithiasis [Unknown]
  - Renal failure [Recovered/Resolved]
  - Nausea [Unknown]
  - Dehydration [Unknown]
  - Tooth infection [Unknown]

NARRATIVE: CASE EVENT DATE: 201603
